FAERS Safety Report 23181103 (Version 1)
Quarter: 2023Q4

REPORT INFORMATION
  Report Type: Spontaneous
  Country: US (occurrence: US)
  Receive Date: 20231114
  Receipt Date: 20231114
  Transmission Date: 20240110
  Serious: Yes (Other)
  Sender: FDA-Public Use
  Company Number: US-PFM-2023-06127

PATIENT
  Age: 0 Year
  Sex: Male

DRUGS (1)
  1. HEMANGEOL [Suspect]
     Active Substance: PROPRANOLOL HYDROCHLORIDE
     Indication: Haemangioma
     Dosage: UNK
     Route: 048
     Dates: start: 20231020

REACTIONS (3)
  - Haemorrhage [Unknown]
  - Eye swelling [Unknown]
  - Illness [Unknown]

NARRATIVE: CASE EVENT DATE: 20231023
